FAERS Safety Report 6422092-0 (Version None)
Quarter: 2009Q4

REPORT INFORMATION
  Report Type: 
  Country: None (occurrence: None)
  Receive Date: 20091029
  Receipt Date: 20091029
  Transmission Date: 20100525
  Serious: No
  Sender: FDA-Public Use
  Company Number: None

PATIENT
  Sex: Female
  Weight: 89.5 kg

DRUGS (2)
  1. BUPROPION HCL [Suspect]
     Indication: DEPRESSION
     Dosage: 300MG 1 A DAY PO
     Route: 048
     Dates: start: 20071201, end: 20080401
  2. BUPROPION HCL [Suspect]
     Indication: FATIGUE
     Dosage: 300MG 1 A DAY PO
     Route: 048
     Dates: start: 20071201, end: 20080401

REACTIONS (2)
  - PRODUCT SUBSTITUTION ISSUE [None]
  - TREATMENT FAILURE [None]
